FAERS Safety Report 18113823 (Version 1)
Quarter: 2020Q3

REPORT INFORMATION
  Report Type: Spontaneous
  Country: US (occurrence: US)
  Receive Date: 20200805
  Receipt Date: 20200805
  Transmission Date: 20201103
  Serious: No
  Sender: FDA-Public Use
  Company Number: None

PATIENT
  Age: 87 Year
  Sex: Male
  Weight: 45 kg

DRUGS (3)
  1. OLANZAPINE (OLANZAPINE 2.5MG TAB) [Suspect]
     Active Substance: OLANZAPINE
     Indication: PATIENT ELOPEMENT
     Dosage: ?          OTHER FREQUENCY:OTHER;?
     Route: 048
     Dates: start: 20160219, end: 20160329
  2. OLANZAPINE (OLANZAPINE 2.5MG TAB) [Suspect]
     Active Substance: OLANZAPINE
     Indication: IMPULSE-CONTROL DISORDER
     Dosage: ?          OTHER FREQUENCY:OTHER;?
     Route: 048
     Dates: start: 20160219, end: 20160329
  3. OLANZAPINE (OLANZAPINE 2.5MG TAB) [Suspect]
     Active Substance: OLANZAPINE
     Indication: AGITATION
     Dosage: ?          OTHER FREQUENCY:OTHER;?
     Route: 048
     Dates: start: 20160219, end: 20160329

REACTIONS (5)
  - Restlessness [None]
  - Leukocytosis [None]
  - Mental status changes [None]
  - Agitation [None]
  - Delirium [None]

NARRATIVE: CASE EVENT DATE: 20160412
